FAERS Safety Report 13741090 (Version 1)
Quarter: 2017Q3

REPORT INFORMATION
  Report Type: Spontaneous
  Country: US (occurrence: US)
  Receive Date: 20170711
  Receipt Date: 20170711
  Transmission Date: 20171127
  Serious: Yes (Other)
  Sender: FDA-Public Use
  Company Number: PHEH2017US020627

PATIENT
  Age: 69 Year
  Sex: Female

DRUGS (2)
  1. JADENU [Suspect]
     Active Substance: DEFERASIROX
     Indication: MYELODYSPLASTIC SYNDROME
     Route: 065
  2. AZACITIDINE. [Concomitant]
     Active Substance: AZACITIDINE
     Indication: PRODUCT USED FOR UNKNOWN INDICATION
     Route: 065

REACTIONS (1)
  - Myelofibrosis [Unknown]

NARRATIVE: CASE EVENT DATE: 2016
